FAERS Safety Report 4348909-1 (Version None)
Quarter: 2004Q2

REPORT INFORMATION
  Report Type: 
  Country: None (occurrence: None)
  Receive Date: 20040421
  Receipt Date: 20040204
  Transmission Date: 20050107
  Serious: No
  Sender: FDA-Public Use
  Company Number: 30018220-C595900-1

PATIENT
  Age: 81 Year
  Sex: Male

DRUGS (2)
  1. EXTRANEAL [Suspect]
     Indication: PERITONEAL DIALYSIS
     Dosage: 7.5 % ICODEXTRIN 2L QD IP
     Route: 033
     Dates: start: 20031120, end: 20040204
  2. DIANEAL LO/CAL [Concomitant]

REACTIONS (3)
  - RASH ERYTHEMATOUS [None]
  - RASH PAPULAR [None]
  - RASH PRURITIC [None]
